FAERS Safety Report 6224093-4 (Version None)
Quarter: 2009Q2

REPORT INFORMATION
  Report Type: 
  Country: None (occurrence: None)
  Receive Date: 20090612
  Receipt Date: 20090305
  Transmission Date: 20091009
  Serious: No
  Sender: FDA-Public Use
  Company Number: US-ABBOTT-09P-163-0561562-00

PATIENT
  Sex: Male
  Weight: 68.1 kg

DRUGS (11)
  1. HUMIRA [Suspect]
     Indication: CROHN'S DISEASE
     Route: 058
     Dates: start: 20090107
  2. PREDNISONE [Concomitant]
     Indication: CROHN'S DISEASE
     Dosage: WEANING OFF SINCE END OF JAN 2009
     Dates: end: 20090101
  3. PENTASA [Concomitant]
     Indication: CROHN'S DISEASE
     Route: 048
  4. FOLIC ACID [Concomitant]
     Indication: CROHN'S DISEASE
     Route: 048
  5. WELLBUTRIN XL [Concomitant]
     Indication: ANXIETY
     Route: 048
  6. WELLBUTRIN XL [Concomitant]
     Indication: OBSESSIVE-COMPULSIVE DISORDER
  7. PAXIL CR [Concomitant]
     Indication: ANXIETY
     Route: 048
  8. ZOLOFT [Concomitant]
     Indication: DRUG USE FOR UNKNOWN INDICATION
     Route: 048
  9. SINGULAIR [Concomitant]
     Indication: DRUG USE FOR UNKNOWN INDICATION
     Route: 048
  10. CALCIUM [Concomitant]
     Indication: DRUG USE FOR UNKNOWN INDICATION
     Route: 048
  11. MULTI-VITAMIN [Concomitant]
     Indication: DRUG USE FOR UNKNOWN INDICATION
     Route: 048

REACTIONS (3)
  - DIARRHOEA [None]
  - INCORRECT DOSE ADMINISTERED [None]
  - WEIGHT DECREASED [None]
